FAERS Safety Report 8057372-9 (Version None)
Quarter: 2012Q1

REPORT INFORMATION
  Report Type: 
  Country: None (occurrence: None)
  Receive Date: 20120119
  Receipt Date: 20120117
  Transmission Date: 20120608
  Serious: Yes (Hospitalization)
  Sender: FDA-Public Use
  Company Number: US-B.I. PHARMACEUTICALS,INC./RIDGEFIELD-2011-BP-25007BP

PATIENT
  Age: 76 Year
  Sex: Female
  Weight: 56.4 kg

DRUGS (4)
  1. PLAVIX [Concomitant]
     Dosage: 75 MG
     Dates: start: 20110201
  2. ASPIRIN [Concomitant]
     Dosage: 81 MG
     Dates: start: 20110201
  3. PRADAXA [Suspect]
     Indication: ATRIAL FIBRILLATION
  4. PRADAXA [Suspect]
     Indication: CARDIAC ABLATION
     Dosage: 300 MG
     Route: 048
     Dates: start: 20110805, end: 20110810

REACTIONS (2)
  - ARTERIOVENOUS FISTULA [None]
  - HAEMATOMA [None]
